FAERS Safety Report 13570586 (Version 1)
Quarter: 2017Q2

REPORT INFORMATION
  Report Type: Report from Study
  Country: US (occurrence: US)
  Receive Date: 20170522
  Receipt Date: 20170522
  Transmission Date: 20170830
  Serious: Yes (Hospitalization)
  Sender: FDA-Public Use
  Company Number: US-ROCHE-1926629

PATIENT
  Age: 69 Year
  Sex: Female
  Weight: 61.74 kg

DRUGS (2)
  1. ACTEMRA [Suspect]
     Active Substance: TOCILIZUMAB
     Route: 058
     Dates: start: 20170301, end: 20170331
  2. ACTEMRA [Suspect]
     Active Substance: TOCILIZUMAB
     Indication: RHEUMATOID ARTHRITIS
     Route: 058
     Dates: end: 201704

REACTIONS (10)
  - Septic shock [Recovering/Resolving]
  - Muscle spasms [Recovered/Resolved]
  - Immunodeficiency [Recovering/Resolving]
  - Pneumonia [Recovering/Resolving]
  - Diarrhoea [Recovering/Resolving]
  - Vomiting [Recovering/Resolving]
  - Muscular weakness [Recovering/Resolving]
  - Hypotension [Recovered/Resolved]
  - Cardiac failure congestive [Recovering/Resolving]
  - Chills [Recovered/Resolved]

NARRATIVE: CASE EVENT DATE: 201704
